FAERS Safety Report 9887422 (Version 1)
Quarter: 2014Q1

REPORT INFORMATION
  Report Type: Spontaneous
  Country: FR (occurrence: FR)
  Receive Date: 20140211
  Receipt Date: 20140211
  Transmission Date: 20141002
  Serious: Yes (Other)
  Sender: FDA-Public Use
  Company Number: FR-MERCK-1402FRA001190

PATIENT
  Age: 54 Year
  Sex: Female

DRUGS (10)
  1. NORSET [Suspect]
     Dosage: 30 MG, QD
     Route: 048
     Dates: start: 20130517, end: 20130617
  2. CLAMOXYL [Suspect]
     Indication: CHRONIC OBSTRUCTIVE PULMONARY DISEASE
     Dosage: 2 DF, BID
     Dates: start: 20130604, end: 20130612
  3. KARDEGIC [Concomitant]
     Dosage: UNK
     Route: 048
  4. ATARAX (ALPRAZOLAM) [Concomitant]
     Dosage: 25 MG, BID
     Dates: start: 20130506
  5. SERESTA [Concomitant]
     Dosage: UNK, PRN
     Route: 048
  6. SEROPLEX [Concomitant]
     Dosage: 5 MG, QD
     Route: 048
     Dates: start: 20130507
  7. THERALENE [Concomitant]
     Dosage: 20 MG, QD
     Route: 048
     Dates: start: 20130506
  8. PLAVIX [Concomitant]
     Dosage: UNK
     Route: 048
  9. TAHOR [Concomitant]
     Dosage: 10 MG, QD
     Route: 048
  10. LEVOTHYROX [Concomitant]
     Dosage: UNK
     Route: 048

REACTIONS (1)
  - Hepatocellular injury [Recovered/Resolved]
